FAERS Safety Report 18351540 (Version 4)
Quarter: 2021Q4

REPORT INFORMATION
  Report Type: Spontaneous
  Country: US (occurrence: US)
  Receive Date: 20201006
  Receipt Date: 20211222
  Transmission Date: 20220303
  Serious: No
  Sender: FDA-Public Use
  Company Number: US-PFIZER INC-2020382894

PATIENT
  Age: 3 Year
  Sex: Female

DRUGS (1)
  1. GENOTROPIN [Suspect]
     Active Substance: SOMATROPIN
     Dosage: 0.3 MG, DAILY (7 DAYS A WEEK)

REACTIONS (4)
  - Decreased appetite [Unknown]
  - Pain [Unknown]
  - Poor quality device used [Unknown]
  - Device leakage [Unknown]
